FAERS Safety Report 4782289-2 (Version None)
Quarter: 2005Q3

REPORT INFORMATION
  Report Type: 
  Country: None (occurrence: None)
  Receive Date: 20050914
  Receipt Date: 20040806
  Transmission Date: 20060218
  Serious: Yes (Other)
  Sender: FDA-Public Use
  Company Number: 163-20785-04080169

PATIENT
  Age: 48 Year
  Sex: Female

DRUGS (9)
  1. THALOMID [Suspect]
     Indication: SARCOIDOSIS
     Dosage: 100 MG, DAILY, ORAL
     Route: 048
     Dates: start: 20040729, end: 20040816
  2. LIPITOR [Concomitant]
  3. PROZAC [Concomitant]
  4. PREDNISONE [Concomitant]
  5. SYNTHROID [Concomitant]
  6. ALTACE [Concomitant]
  7. HCTZ (HYDROCHLOROTHIAZIDE) [Concomitant]
  8. HUMALOG INSULIN (INSULIN LISPRO) [Concomitant]
  9. CALCIUM (CALCIUM) [Concomitant]

REACTIONS (8)
  - ABDOMINAL PAIN [None]
  - BLOOD GLUCOSE INCREASED [None]
  - CHEST PAIN [None]
  - DIZZINESS [None]
  - FATIGUE [None]
  - HYPOAESTHESIA [None]
  - NAUSEA [None]
  - NEUROPATHY PERIPHERAL [None]
